FAERS Safety Report 24557099 (Version 1)
Quarter: 2024Q4

REPORT INFORMATION
  Report Type: Spontaneous
  Country: DE (occurrence: DE)
  Receive Date: 20241028
  Receipt Date: 20241028
  Transmission Date: 20250115
  Serious: Yes (Hospitalization, Other)
  Sender: AUROBINDO
  Company Number: DE-ML39632-2317618-1

PATIENT
  Age: 61 Year
  Sex: Female

DRUGS (8)
  1. TERIFLUNOMIDE [Suspect]
     Active Substance: TERIFLUNOMIDE
     Indication: Relapsing multiple sclerosis
     Dosage: UNK (MOST RECENT DOSE RECEIVED ON 01-JUN-2023)
     Route: 048
     Dates: start: 20210811
  2. PANTOPRAZOLE [Concomitant]
     Active Substance: PANTOPRAZOLE
     Indication: Product used for unknown indication
     Dosage: 20 MILLIGRAM (DEFINITION OF THE INTERVAL: AS REQUIRED)
     Route: 065
     Dates: start: 201507
  3. NABIXIMOLS [Concomitant]
     Active Substance: NABIXIMOLS
     Indication: Product used for unknown indication
     Dosage: 2.7 INTERNATIONAL UNIT, ONCE A DAY
     Route: 002
     Dates: start: 201811, end: 20221123
  4. CHOLECALCIFEROL [Concomitant]
     Active Substance: CHOLECALCIFEROL
     Indication: Product used for unknown indication
     Dosage: 20000 INTERNATIONAL UNIT, EVERY WEEK
     Route: 048
     Dates: start: 201504
  5. PREGABALIN [Concomitant]
     Active Substance: PREGABALIN
     Indication: Neuralgia
     Dosage: 50 MILLIGRAM, ONCE A DAY
     Route: 048
     Dates: start: 201511
  6. DALFAMPRIDINE [Concomitant]
     Active Substance: DALFAMPRIDINE
     Indication: Product used for unknown indication
     Dosage: 10 MILLIGRAM, TWO TIMES A DAY
     Route: 048
     Dates: start: 201211
  7. IBUPROFEN [Concomitant]
     Active Substance: IBUPROFEN
     Indication: Arthralgia
     Dosage: 600 MILLIGRAM (DEFINITION OF THE INTERVAL: AS REQUIRED)
     Route: 048
     Dates: start: 201507
  8. CHOLESTYRAMINE [Concomitant]
     Active Substance: CHOLESTYRAMINE
     Indication: Product used for unknown indication
     Dosage: 4 GRAM
     Route: 048
     Dates: start: 20230602, end: 20230612

REACTIONS (1)
  - Breast cancer recurrent [Recovering/Resolving]

NARRATIVE: CASE EVENT DATE: 20230601
